FAERS Safety Report 18990715 (Version 3)
Quarter: 2022Q2

REPORT INFORMATION
  Report Type: Report from Study
  Country: US (occurrence: US)
  Receive Date: 20210310
  Receipt Date: 20220621
  Transmission Date: 20220721
  Serious: No
  Sender: FDA-Public Use
  Company Number: NVSC2021US053642

PATIENT
  Sex: Male

DRUGS (1)
  1. COSENTYX [Suspect]
     Active Substance: SECUKINUMAB
     Indication: Product used for unknown indication
     Dosage: UNK
     Route: 065

REACTIONS (7)
  - Pain [Unknown]
  - Gait disturbance [Unknown]
  - Hypokinesia [Unknown]
  - Inflammation [Unknown]
  - Symptom recurrence [Unknown]
  - General physical health deterioration [Unknown]
  - Drug ineffective [Unknown]
